FAERS Safety Report 4373999-X (Version None)
Quarter: 2004Q2

REPORT INFORMATION
  Report Type: 
  Country: None (occurrence: None)
  Receive Date: 20040601
  Receipt Date: 20040209
  Transmission Date: 20050107
  Serious: No
  Sender: FDA-Public Use
  Company Number: MPS1-10168

PATIENT
  Age: 14 Year
  Sex: Male
  Weight: 57.1532 kg

DRUGS (1)
  1. ALDURAZYME [Suspect]
     Indication: MUCOPOLYSACCHARIDOSIS I
     Dosage: 0.58 MG/KG QWK IV
     Route: 042
     Dates: start: 20031113

REACTIONS (3)
  - DIZZINESS POSTURAL [None]
  - HYPOTENSION [None]
  - PALLOR [None]
